FAERS Safety Report 19985827 (Version 2)
Quarter: 2025Q3

REPORT INFORMATION
  Report Type: Spontaneous
  Country: EU (occurrence: EU)
  Receive Date: 20211022
  Receipt Date: 20250814
  Transmission Date: 20251021
  Serious: Yes (Disabling)
  Sender: ELI LILLY AND COMPANY
  Company Number: EU-ELI_LILLY_AND_COMPANY-NO202101000181

PATIENT
  Age: 19 Year
  Sex: Male

DRUGS (25)
  1. ZYPADHERA [Suspect]
     Active Substance: OLANZAPINE PAMOATE
     Indication: Anxiety
     Route: 030
     Dates: start: 20150901, end: 20181010
  2. ZYPADHERA [Suspect]
     Active Substance: OLANZAPINE PAMOATE
     Indication: Anxiety
     Route: 030
     Dates: start: 20150901, end: 20181010
  3. ZYPADHERA [Suspect]
     Active Substance: OLANZAPINE PAMOATE
     Indication: Anxiety
     Route: 030
     Dates: start: 20150901, end: 20181010
  4. ZYPADHERA [Suspect]
     Active Substance: OLANZAPINE PAMOATE
     Indication: Depression
  5. ZYPADHERA [Suspect]
     Active Substance: OLANZAPINE PAMOATE
     Indication: Depression
  6. ZYPADHERA [Suspect]
     Active Substance: OLANZAPINE PAMOATE
     Indication: Depression
  7. ZYPADHERA [Suspect]
     Active Substance: OLANZAPINE PAMOATE
     Indication: Psychotic disorder
  8. ZYPADHERA [Suspect]
     Active Substance: OLANZAPINE PAMOATE
     Indication: Psychotic disorder
  9. ZYPADHERA [Suspect]
     Active Substance: OLANZAPINE PAMOATE
     Indication: Psychotic disorder
  10. ZYPADHERA [Suspect]
     Active Substance: OLANZAPINE PAMOATE
     Indication: Schizophrenia
  11. ZYPADHERA [Suspect]
     Active Substance: OLANZAPINE PAMOATE
     Indication: Schizophrenia
  12. ZYPADHERA [Suspect]
     Active Substance: OLANZAPINE PAMOATE
     Indication: Schizophrenia
  13. ABILIFY [Suspect]
     Active Substance: ARIPIPRAZOLE
     Indication: Anxiety
     Route: 065
     Dates: start: 20150901, end: 2017
  14. ABILIFY [Suspect]
     Active Substance: ARIPIPRAZOLE
     Indication: Depression
     Route: 065
     Dates: start: 201801, end: 20181010
  15. ABILIFY [Suspect]
     Active Substance: ARIPIPRAZOLE
     Indication: Psychotic disorder
  16. ZUCLOPENTHIXOL ACETATE [Suspect]
     Active Substance: ZUCLOPENTHIXOL ACETATE
     Indication: Product used for unknown indication
     Route: 065
     Dates: start: 20150901
  17. LATUDA [Concomitant]
     Active Substance: LURASIDONE HYDROCHLORIDE
     Indication: Product used for unknown indication
     Dates: start: 20150901
  18. CHLORPROTHIXENE [Concomitant]
     Active Substance: CHLORPROTHIXENE
     Indication: Product used for unknown indication
     Dates: start: 20150901
  19. LEVOMEPROMAZINE [Concomitant]
     Active Substance: LEVOMEPROMAZINE
     Indication: Product used for unknown indication
     Dates: start: 20150901
  20. PALIPERIDONE PALMITATE [Concomitant]
     Active Substance: PALIPERIDONE PALMITATE
     Indication: Product used for unknown indication
     Dates: start: 20150901
  21. PALIPERIDONE PALMITATE [Concomitant]
     Active Substance: PALIPERIDONE PALMITATE
     Dates: start: 2016
  22. SEROQUEL [Concomitant]
     Active Substance: QUETIAPINE FUMARATE
     Indication: Product used for unknown indication
     Dates: start: 20150901
  23. AKINETON [Concomitant]
     Active Substance: BIPERIDEN HYDROCHLORIDE
     Indication: Product used for unknown indication
     Dates: start: 2019
  24. PERPHENAZINE [Concomitant]
     Active Substance: PERPHENAZINE
     Indication: Product used for unknown indication
     Dates: start: 2019
  25. CLOZAPINE [Concomitant]
     Active Substance: CLOZAPINE
     Indication: Product used for unknown indication
     Dates: start: 201908

REACTIONS (34)
  - Mobility decreased [Unknown]
  - Motor dysfunction [Not Recovered/Not Resolved]
  - Impaired work ability [Not Recovered/Not Resolved]
  - Catatonia [Unknown]
  - Trismus [Unknown]
  - Dysphagia [Unknown]
  - Decreased appetite [Unknown]
  - Malnutrition [Unknown]
  - Speech disorder [Unknown]
  - Vision blurred [Unknown]
  - Hyperhidrosis [Unknown]
  - Emotional disorder [Unknown]
  - Insomnia [Unknown]
  - Panic reaction [Unknown]
  - Irritability [Unknown]
  - Swelling [Unknown]
  - Pain in extremity [Unknown]
  - Musculoskeletal stiffness [Not Recovered/Not Resolved]
  - Abdominal pain [Unknown]
  - Tremor [Unknown]
  - Erythema [Unknown]
  - Reduced facial expression [Unknown]
  - Hypokinesia [Not Recovered/Not Resolved]
  - Bradycardia [Unknown]
  - Bradykinesia [Unknown]
  - Restlessness [Unknown]
  - Alopecia [Unknown]
  - Somnolence [Unknown]
  - Confusional state [Unknown]
  - Anxiety [Unknown]
  - Akathisia [Unknown]
  - Agitation [Unknown]
  - Eye pain [Unknown]
  - Fatigue [Unknown]

NARRATIVE: CASE EVENT DATE: 20150911
